FAERS Safety Report 12641489 (Version 1)
Quarter: 2016Q3

REPORT INFORMATION
  Report Type: Report from Study
  Country: US (occurrence: US)
  Receive Date: 20160810
  Receipt Date: 20160810
  Transmission Date: 20161109
  Serious: Yes (Other)
  Sender: FDA-Public Use
  Company Number: US-GILEAD-2016-0226777

PATIENT
  Sex: Male

DRUGS (1)
  1. LEDIPASVIR/SOFOSBUVIR [Suspect]
     Active Substance: LEDIPASVIR\SOFOSBUVIR
     Indication: HEPATITIS C
     Dosage: 1 DF, QD
     Route: 048
     Dates: start: 20160623

REACTIONS (7)
  - Musculoskeletal stiffness [Recovering/Resolving]
  - Blood iron abnormal [Unknown]
  - Hepatic cirrhosis [Unknown]
  - Joint stiffness [Unknown]
  - Head discomfort [Unknown]
  - Exposure to toxic agent [Unknown]
  - Mastication disorder [Unknown]

NARRATIVE: CASE EVENT DATE: 20160730
